FAERS Safety Report 23531294 (Version 2)
Quarter: 2025Q1

REPORT INFORMATION
  Report Type: Spontaneous
  Country: US (occurrence: US)
  Receive Date: 20240216
  Receipt Date: 20250205
  Transmission Date: 20250408
  Serious: No
  Sender: pharmaAND
  Company Number: US-Pharmaand-2023001377

PATIENT
  Age: 77 Year
  Sex: Male

DRUGS (5)
  1. RUBRACA [Suspect]
     Active Substance: RUCAPARIB CAMSYLATE
     Indication: Prostate cancer
     Dosage: 300 MG TWICE DAILY
  2. RUBRACA [Suspect]
     Active Substance: RUCAPARIB CAMSYLATE
     Dosage: 250MG TWICE DAILY
  3. RUBRACA [Suspect]
     Active Substance: RUCAPARIB CAMSYLATE
     Dosage: 1 TABLET TWICE DAILY (8 AM, 8 PM)
     Dates: end: 20231227
  4. RUBRACA [Suspect]
     Active Substance: RUCAPARIB CAMSYLATE
     Dates: start: 20240111
  5. HUMIRA [Concomitant]
     Active Substance: ADALIMUMAB
     Indication: Crohn^s disease

REACTIONS (9)
  - Peripheral swelling [Not Recovered/Not Resolved]
  - Expired product administered [Unknown]
  - Product dose omission issue [Unknown]
  - Off label use [Unknown]
  - Dizziness [Recovered/Resolved]
  - Gait disturbance [Recovered/Resolved]
  - Decubitus ulcer [Unknown]
  - Neoplasm [Not Recovered/Not Resolved]
  - Red blood cell count decreased [Recovered/Resolved]

NARRATIVE: CASE EVENT DATE: 20231201
